FAERS Safety Report 21766132 (Version 1)
Quarter: 2022Q4

REPORT INFORMATION
  Report Type: Spontaneous
  Country: US (occurrence: US)
  Receive Date: 20221222
  Receipt Date: 20221222
  Transmission Date: 20230113
  Serious: Yes (Other)
  Sender: FDA-Public Use
  Company Number: US-Fresenius Medical Care Renal Therapies Group-FMC-2212-001918

PATIENT
  Age: 61 Year
  Sex: Male
  Weight: 84 kg

DRUGS (3)
  1. DELFLEX WITH DEXTROSE 1.5% LOW MAGNESIUM LOW CALCIUM [Suspect]
     Active Substance: CALCIUM CHLORIDE\DEXTROSE\MAGNESIUM CHLORIDE\SODIUM CHLORIDE\SODIUM LACTATE
     Indication: End stage renal disease
     Dosage: 7 DAYS A WEEK, EXCHANGES 5, FILL VOLUME1700 ML, DWELL TIME 1.75 HOURS, LAST FILL 300 ML, DAYTIME DWE
     Route: 033
  2. DELFLEX WITH DEXTROSE 2.5% LOW MAGNESIUM LOW CALCIUM [Suspect]
     Active Substance: CALCIUM CHLORIDE\DEXTROSE\MAGNESIUM CHLORIDE\SODIUM CHLORIDE\SODIUM LACTATE
     Indication: End stage renal disease
     Dosage: 7 DAYS A WEEK, EXCHANGES 5, FILL VOLUME1700 ML, DWELL TIME 1.75 HOURS, LAST FILL 300 ML, DAYTIME DWE
     Route: 033
  3. DELFLEX WITH DEXTROSE 4.25% LOW MAGNESIUM LOW CALCIUM [Suspect]
     Active Substance: CALCIUM CHLORIDE\DEXTROSE\MAGNESIUM CHLORIDE\SODIUM CHLORIDE\SODIUM LACTATE
     Indication: End stage renal disease
     Dosage: 7 DAYS A WEEK, EXCHANGES 5, FILL VOLUME1700 ML, DWELL TIME 1.75 HOURS, LAST FILL 300 ML, DAYTIME DWE
     Route: 033

REACTIONS (1)
  - Peritonitis [Recovering/Resolving]
